FAERS Safety Report 9310255 (Version 1)
Quarter: 2013Q2

REPORT INFORMATION
  Report Type: Spontaneous
  Country: IT (occurrence: IT)
  Receive Date: 20130527
  Receipt Date: 20130527
  Transmission Date: 20140414
  Serious: Yes (Disabling)
  Sender: FDA-Public Use
  Company Number: PHHY2013IT051812

PATIENT
  Sex: Male

DRUGS (9)
  1. ZOMETA [Suspect]
     Indication: PROSTATE CANCER METASTATIC
     Dosage: UNK
     Route: 042
     Dates: start: 20120701, end: 20120801
  2. AREDIA [Suspect]
     Indication: PROSTATE CANCER METASTATIC
     Dosage: UNK
     Route: 042
     Dates: start: 19991201, end: 20120601
  3. ENANTONE [Concomitant]
     Dosage: UNK
     Dates: start: 199910, end: 200505
  4. CASODEX [Concomitant]
     Dosage: UNK
     Dates: start: 199911, end: 200701
  5. SANDOSTATINA [Concomitant]
     Dosage: UNK
     Dates: start: 200512, end: 200603
  6. OKI [Concomitant]
     Dosage: UNK
  7. CARDIOASPIRIN [Concomitant]
     Dosage: 1 U, POS. UNIT
  8. COTAREG [Concomitant]
     Dosage: 1 U, POS. UNIT
  9. ANTIOXIDANT                        /02147801/ [Concomitant]
     Dosage: UNK UKN, UNK

REACTIONS (4)
  - Osteonecrosis of jaw [Recovering/Resolving]
  - Exposed bone in jaw [Unknown]
  - Purulent discharge [Unknown]
  - Pain in jaw [Unknown]
